FAERS Safety Report 6160094-2 (Version None)
Quarter: 2009Q2

REPORT INFORMATION
  Report Type: 
  Country: None (occurrence: None)
  Receive Date: 20090420
  Receipt Date: 20090409
  Transmission Date: 20091009
  Serious: Yes (Other)
  Sender: FDA-Public Use
  Company Number: US-CELGENEUS-163-20785-09040537

PATIENT
  Sex: Female

DRUGS (2)
  1. THALOMID [Suspect]
     Indication: MULTIPLE MYELOMA
     Route: 048
     Dates: start: 20081101, end: 20090301
  2. THALOMID [Suspect]
     Route: 048
     Dates: start: 20080901, end: 20081001

REACTIONS (2)
  - DRUG INEFFECTIVE [None]
  - RENAL DISORDER [None]
